FAERS Safety Report 7660341-1 (Version None)
Quarter: 2011Q3

REPORT INFORMATION
  Report Type: 
  Country: None (occurrence: None)
  Receive Date: 20110805
  Receipt Date: 20110802
  Transmission Date: 20111222
  Serious: Yes (Hospitalization)
  Sender: FDA-Public Use
  Company Number: MY-AMGEN-MYSCT2011017022

PATIENT
  Age: 42 Year
  Sex: Female
  Weight: 34.6 kg

DRUGS (8)
  1. DOXYCYCLINE [Concomitant]
     Indication: NAIL TOXICITY
     Dosage: UNK UNK, UNK
     Route: 048
     Dates: start: 20100827
  2. LORAZEPAM [Concomitant]
     Indication: INSOMNIA
     Dosage: UNK
     Route: 048
     Dates: start: 20101004
  3. CELEBREX [Concomitant]
     Indication: PAIN
     Dosage: UNK
     Route: 048
     Dates: start: 20100205
  4. OLIVE OIL [Concomitant]
     Indication: DRY SKIN
     Dosage: UNK
     Route: 061
     Dates: start: 20100730
  5. PANITUMUMAB [Suspect]
     Indication: COLORECTAL CANCER METASTATIC
     Dosage: 115 MG, UNK
     Dates: start: 20100702
  6. AQUEOUS [Concomitant]
     Indication: DRY SKIN
     Dosage: UNK
     Route: 061
     Dates: start: 20100716
  7. CHLORPHENIRAMINE MALEATE [Concomitant]
     Indication: PRURITUS
     Dosage: UNK UNK, UNK
     Route: 048
     Dates: start: 20100924
  8. OXYCONTIN [Concomitant]
     Indication: PAIN
     Dosage: UNK
     Route: 048
     Dates: start: 20100622

REACTIONS (1)
  - HAEMOGLOBIN DECREASED [None]
